FAERS Safety Report 12653243 (Version 2)
Quarter: 2016Q3

REPORT INFORMATION
  Report Type: Report from Study
  Country: US (occurrence: US)
  Receive Date: 20160815
  Receipt Date: 20160909
  Transmission Date: 20161109
  Serious: Yes (Disabling)
  Sender: FDA-Public Use
  Company Number: US-GILEAD-2016-0224486

PATIENT
  Age: 54 Year
  Sex: Female
  Weight: 87.75 kg

DRUGS (8)
  1. AMBRISENTAN [Suspect]
     Active Substance: AMBRISENTAN
     Indication: PULMONARY ARTERIAL HYPERTENSION
     Dosage: 5 MG, QD
     Route: 065
     Dates: start: 20160503
  2. LASIX [Concomitant]
     Active Substance: FUROSEMIDE
  3. COMBIVENT [Concomitant]
     Active Substance: ALBUTEROL SULFATE\IPRATROPIUM BROMIDE
  4. NAPROXEN. [Concomitant]
     Active Substance: NAPROXEN
  5. LISINOPRIL. [Concomitant]
     Active Substance: LISINOPRIL
  6. OXYGEN. [Concomitant]
     Active Substance: OXYGEN
  7. AMBRISENTAN [Suspect]
     Active Substance: AMBRISENTAN
     Dosage: 5 MG, QD
     Route: 065
     Dates: start: 20160719
  8. BENICAR [Concomitant]
     Active Substance: OLMESARTAN MEDOXOMIL

REACTIONS (5)
  - Dizziness [Recovered/Resolved]
  - Flushing [Recovered/Resolved]
  - Peripheral swelling [Recovered/Resolved]
  - Drug dose omission [Recovered/Resolved]
  - Dyspnoea [Recovered/Resolved]
